FAERS Safety Report 8312583-X (Version None)
Quarter: 2012Q2

REPORT INFORMATION
  Report Type: 
  Country: None (occurrence: None)
  Receive Date: 20120424
  Receipt Date: 20120409
  Transmission Date: 20120825
  Serious: Yes (Other)
  Sender: FDA-Public Use
  Company Number: 2012SP020784

PATIENT
  Age: 51 Year
  Sex: Male
  Weight: 90.6 kg

DRUGS (14)
  1. PEGINTERFERON ALFA-2A [Suspect]
     Indication: HEPATITIS C
     Dosage: 180 MCG;QW;SC
     Route: 058
     Dates: start: 20120119, end: 20120309
  2. GS-9451 [Suspect]
     Indication: HEPATITIS C
     Dosage: 2 DF;QD;PO ; 2 DF;QD;PO
     Route: 048
     Dates: start: 20111229, end: 20120118
  3. GS-9451 [Suspect]
     Indication: HEPATITIS C
     Dosage: 2 DF;QD;PO ; 2 DF;QD;PO
     Route: 048
     Dates: start: 20120119, end: 20120313
  4. ASPIRIN [Concomitant]
  5. SULINDAC [Concomitant]
  6. PLACEBO [Suspect]
     Indication: HEPATITIS C
     Dosage: 1 DF;BID;PO
     Route: 048
     Dates: start: 20111229, end: 20120118
  7. ZITHROMAX [Concomitant]
  8. GS-5885 [Suspect]
     Indication: HEPATITIS C
     Dosage: 3 DF;QD;PO ; 3 DF;QD;PO
     Route: 048
     Dates: start: 20120119, end: 20120313
  9. GS-5885 [Suspect]
     Indication: HEPATITIS C
     Dosage: 3 DF;QD;PO ; 3 DF;QD;PO
     Route: 048
     Dates: start: 20111229, end: 20120118
  10. CELEXA [Concomitant]
  11. TYLENOL (CAPLET) [Concomitant]
  12. METOPROLOL TARTRATE [Concomitant]
  13. RIBAVIRIN [Suspect]
     Indication: HEPATITIS C
     Dosage: 600 MG;BID;PO ; 500 MG;BID;PO
     Route: 048
     Dates: start: 20111229, end: 20120118
  14. RIBAVIRIN [Suspect]
     Indication: HEPATITIS C
     Dosage: 600 MG;BID;PO ; 500 MG;BID;PO
     Route: 048
     Dates: start: 20110119, end: 20120313

REACTIONS (25)
  - PERONEAL NERVE PALSY [None]
  - ORAL MUCOSA EROSION [None]
  - STAPHYLOCOCCUS TEST POSITIVE [None]
  - POLYNEUROPATHY [None]
  - SKIN PLAQUE [None]
  - SKIN LESION [None]
  - PRURITUS [None]
  - HYPERSENSITIVITY [None]
  - SCAB [None]
  - INFECTION [None]
  - PARAESTHESIA [None]
  - RASH PAPULAR [None]
  - FALL [None]
  - ERYTHEMA MULTIFORME [None]
  - DERMATITIS ATOPIC [None]
  - OEDEMA [None]
  - RASH ERYTHEMATOUS [None]
  - ERYTHEMA [None]
  - ORAL DISORDER [None]
  - SENSORY DISTURBANCE [None]
  - TENDERNESS [None]
  - MOTOR DYSFUNCTION [None]
  - OTORRHOEA [None]
  - EAR DISORDER [None]
  - MUSCULAR WEAKNESS [None]
